FAERS Safety Report 13807356 (Version 1)
Quarter: 2017Q3

REPORT INFORMATION
  Report Type: Spontaneous
  Country: US (occurrence: US)
  Receive Date: 20170728
  Receipt Date: 20170728
  Transmission Date: 20171127
  Serious: No
  Sender: FDA-Public Use
  Company Number: US-BAYER-2017-144522

PATIENT
  Age: 4 Year
  Sex: Female

DRUGS (1)
  1. CLARITIN [Suspect]
     Active Substance: LORATADINE
     Dosage: UNK UNK, ONCE
     Route: 048

REACTIONS (1)
  - Accidental exposure to product by child [Unknown]
